FAERS Safety Report 5489339-9 (Version None)
Quarter: 2007Q4

REPORT INFORMATION
  Report Type: 
  Country: None (occurrence: None)
  Receive Date: 20071016
  Receipt Date: 20071016
  Transmission Date: 20080405
  Serious: Yes (Hospitalization)
  Sender: FDA-Public Use
  Company Number: None

PATIENT
  Age: 88 Year
  Sex: Male
  Weight: 79.3795 kg

DRUGS (7)
  1. CISPLATIN [Suspect]
     Indication: NEOPLASM MALIGNANT
     Dosage: Q3 WKS, IV
     Route: 042
     Dates: start: 20070912, end: 20071003
  2. TAXOTERE [Suspect]
     Indication: NEOPLASM MALIGNANT
     Dosage: Q 3 WKS IV
     Route: 042
     Dates: start: 20070912, end: 20071003
  3. ERBITUX [Suspect]
     Indication: NEOPLASM MALIGNANT
     Dosage: WEEKLY IV
     Route: 042
     Dates: start: 20070912, end: 20071001
  4. DECADRON [Concomitant]
  5. COMPAZINE [Concomitant]
  6. CIPRO (PROPHYLAXIS) [Concomitant]
  7. CLINDAMYCIN GEL [Concomitant]

REACTIONS (3)
  - CLOSTRIDIUM DIFFICILE COLITIS [None]
  - NEUTROPHIL COUNT ABNORMAL [None]
  - PYREXIA [None]
